FAERS Safety Report 4658660-6 (Version None)
Quarter: 2005Q2

REPORT INFORMATION
  Report Type: 
  Country: None (occurrence: None)
  Receive Date: 20050509
  Receipt Date: 20050509
  Transmission Date: 20051028
  Serious: No
  Sender: FDA-Public Use
  Company Number: None

PATIENT
  Sex: Female
  Weight: 68.0396 kg

DRUGS (1)
  1. THYROXINE (GENERIC) [Suspect]
     Indication: HYPOTHYROIDISM
     Dosage: 0.088 MG
     Dates: start: 19830101

REACTIONS (3)
  - NAUSEA [None]
  - PRURITUS [None]
  - VOMITING [None]
